FAERS Safety Report 7501503-3 (Version None)
Quarter: 2011Q2

REPORT INFORMATION
  Report Type: 
  Country: None (occurrence: None)
  Receive Date: 20110524
  Receipt Date: 20110512
  Transmission Date: 20111010
  Serious: Yes (Other)
  Sender: FDA-Public Use
  Company Number: HK-WATSON-2011-05597

PATIENT
  Age: 7 Year
  Sex: Female

DRUGS (3)
  1. BLEOMYCIN SULFATE [Suspect]
     Indication: PITUITARY TUMOUR
  2. ETOPOSIDE [Suspect]
     Indication: PITUITARY TUMOUR
     Dosage: UNK
  3. CISPLATIN [Suspect]
     Indication: PITUITARY TUMOUR

REACTIONS (2)
  - POSTERIOR REVERSIBLE ENCEPHALOPATHY SYNDROME [None]
  - REFRACTORY CANCER [None]
